FAERS Safety Report 12812336 (Version 2)
Quarter: 2016Q4

REPORT INFORMATION
  Report Type: Report from Study
  Country: MX (occurrence: MX)
  Receive Date: 20161005
  Receipt Date: 20161103
  Transmission Date: 20170207
  Serious: Yes (Death)
  Sender: FDA-Public Use
  Company Number: PHHY2016MX136925

PATIENT
  Age: 66 Year
  Sex: Female
  Weight: 45 kg

DRUGS (4)
  1. RENAGEL [Concomitant]
     Active Substance: SEVELAMER HYDROCHLORIDE
     Indication: PRODUCT USED FOR UNKNOWN INDICATION
     Dosage: 1 DF, QD
     Route: 048
     Dates: start: 2013, end: 201608
  2. NEPRO                              /07459601/ [Concomitant]
     Indication: MEDICAL DIET
     Dosage: 2 DF, QD
     Route: 048
     Dates: start: 2015, end: 201608
  3. BIOYETIN [Concomitant]
     Indication: BLOOD DISORDER
     Dosage: 1 DF, QW
     Route: 030
     Dates: start: 2012, end: 20160819
  4. CO-DIOVAN [Suspect]
     Active Substance: HYDROCHLOROTHIAZIDE\VALSARTAN
     Indication: HYPERTENSION
     Dosage: 1.5 DF (VALSARTAN 80 MG, HYDROCHLOROTHIAZIDE 12.5 MG), (ONE TABLET IN THE MORNING AND HALF AT NIGHT)
     Route: 048
     Dates: start: 2012

REACTIONS (4)
  - Drug prescribing error [Recovered/Resolved]
  - Inappropriate schedule of drug administration [Recovered/Resolved]
  - Wrong technique in product usage process [Recovered/Resolved]
  - Chronic kidney disease [Fatal]

NARRATIVE: CASE EVENT DATE: 2012
